FAERS Safety Report 11425377 (Version 1)
Quarter: 2015Q3

REPORT INFORMATION
  Report Type: Spontaneous
  Country: US (occurrence: US)
  Receive Date: 20150821
  Receipt Date: 20150821
  Transmission Date: 20151125
  Serious: No
  Sender: FDA-Public Use
  Company Number: US-ELI_LILLY_AND_COMPANY-US201103001125

PATIENT
  Age: 67 Year
  Sex: Female

DRUGS (4)
  1. HUMULIN N [Suspect]
     Active Substance: INSULIN HUMAN
     Indication: TYPE 2 DIABETES MELLITUS
     Dosage: UNK, AS NEEDED
     Dates: start: 1982
  2. HUMULIN R [Suspect]
     Active Substance: INSULIN HUMAN
     Dosage: UNK, AS NEEDED
     Dates: start: 1982
  3. HUMULIN N [Suspect]
     Active Substance: INSULIN HUMAN
     Dosage: UNK, AS NEEDED
     Dates: start: 1982
  4. HUMULIN R [Suspect]
     Active Substance: INSULIN HUMAN
     Indication: TYPE 2 DIABETES MELLITUS
     Dosage: UNK, AS NEEDED
     Dates: start: 1982

REACTIONS (8)
  - Expired product administered [Unknown]
  - Blood cholesterol increased [Unknown]
  - Hypertension [Unknown]
  - Muscle spasms [Unknown]
  - Cataract [Unknown]
  - Blood glucose increased [Unknown]
  - Angina pectoris [Unknown]
  - Blood glucose decreased [Unknown]
